FAERS Safety Report 6609064-8 (Version None)
Quarter: 2010Q1

REPORT INFORMATION
  Report Type: 
  Country: None (occurrence: None)
  Receive Date: 20100224
  Receipt Date: 20100224
  Transmission Date: 20100710
  Serious: No
  Sender: FDA-Public Use
  Company Number: None

PATIENT
  Age: 45 Year
  Sex: Male
  Weight: 85.7298 kg

DRUGS (12)
  1. ALLOPURINOL [Suspect]
     Dosage: 300MG Q AM PO
     Route: 048
  2. CLONIDINE [Concomitant]
  3. LORAZEPAM [Concomitant]
  4. REMERON [Concomitant]
  5. RISPERDAL [Concomitant]
  6. RANITIDINE [Concomitant]
  7. THIAMINE [Concomitant]
  8. MAGNESIUM [Concomitant]
  9. MULTI-VITAMIN [Concomitant]
  10. OMEPRAZOLE [Concomitant]
  11. OXYCODONE HCL [Concomitant]
  12. INDOMETHACIN [Concomitant]

REACTIONS (1)
  - APLASTIC ANAEMIA [None]
